FAERS Safety Report 12361186 (Version 1)
Quarter: 2016Q2

REPORT INFORMATION
  Report Type: Spontaneous
  Country: US (occurrence: US)
  Receive Date: 20160512
  Receipt Date: 20160512
  Transmission Date: 20160815
  Serious: No
  Sender: FDA-Public Use
  Company Number: PHHY2016US065497

PATIENT
  Age: 85 Year
  Sex: Male

DRUGS (2)
  1. VOLTAREN [Suspect]
     Active Substance: DICLOFENAC SODIUM
     Indication: CONGENITAL KNEE DEFORMITY
     Dosage: 2 G, QID
     Route: 065
  2. VOLTAREN [Suspect]
     Active Substance: DICLOFENAC SODIUM
     Indication: CONGENITAL KNEE DEFORMITY
     Dosage: 2 G, QID
     Route: 065
     Dates: start: 201602

REACTIONS (2)
  - Incorrect dose administered [Unknown]
  - Product use issue [Unknown]
